FAERS Safety Report 9378617 (Version 1)
Quarter: 2013Q3

REPORT INFORMATION
  Report Type: Spontaneous
  Country: BR (occurrence: BR)
  Receive Date: 20130702
  Receipt Date: 20130702
  Transmission Date: 20140515
  Serious: Yes (Hospitalization)
  Sender: FDA-Public Use
  Company Number: BR-ASTRAZENECA-2013SE48656

PATIENT
  Age: 75 Year
  Sex: Female
  Weight: 51 kg

DRUGS (3)
  1. CRESTOR [Suspect]
     Indication: BLOOD CHOLESTEROL INCREASED
     Route: 048
     Dates: start: 2010
  2. SPIRIVA [Concomitant]
     Indication: EMPHYSEMA
     Dates: start: 2005
  3. FLUIR [Concomitant]
     Indication: EMPHYSEMA
     Dates: start: 2005

REACTIONS (3)
  - Coronary artery occlusion [Recovered/Resolved]
  - Hypotension [Recovered/Resolved]
  - Off label use [Not Recovered/Not Resolved]
